FAERS Safety Report 22245477 (Version 2)
Quarter: 2023Q2

REPORT INFORMATION
  Report Type: Report from Study
  Country: BD (occurrence: BD)
  Receive Date: 20230424
  Receipt Date: 20230425
  Transmission Date: 20230722
  Serious: Yes (Death)
  Sender: FDA-Public Use
  Company Number: BD-002147023-NVSC2023BD091856

PATIENT
  Age: 42 Year
  Sex: Male
  Weight: 75 kg

DRUGS (3)
  1. SANDOSTATIN LAR DEPOT [Suspect]
     Active Substance: OCTREOTIDE ACETATE
     Indication: Product used for unknown indication
     Dosage: UNK
     Route: 065
     Dates: start: 20230325, end: 20230325
  2. SANDOSTATIN LAR DEPOT [Suspect]
     Active Substance: OCTREOTIDE ACETATE
  3. SANDOSTATIN LAR DEPOT [Suspect]
     Active Substance: OCTREOTIDE ACETATE

REACTIONS (1)
  - Death [Fatal]

NARRATIVE: CASE EVENT DATE: 20230405
